FAERS Safety Report 6348334-8 (Version None)
Quarter: 2009Q3

REPORT INFORMATION
  Report Type: 
  Country: None (occurrence: None)
  Receive Date: 20090908
  Receipt Date: 20090820
  Transmission Date: 20100115
  Serious: Yes (Death)
  Sender: FDA-Public Use
  Company Number: 2009AL000843

PATIENT
  Age: 60 Year
  Sex: Male

DRUGS (41)
  1. DIGOXIN [Suspect]
     Indication: ATRIAL FIBRILLATION
     Dosage: 0.125MG, DAILY, PO
     Route: 048
  2. RELION [Concomitant]
  3. ALLOPURINOL [Concomitant]
  4. ALTACE [Concomitant]
  5. PACERONE [Concomitant]
  6. PROTONIX [Concomitant]
  7. AMITRIPTYLINE HCL [Concomitant]
  8. SULFAMETHOXAZOLE AND TRIMETHOPRIM [Concomitant]
  9. KETOCONAZOLE [Concomitant]
  10. ZOCOR [Concomitant]
  11. CARISPRODOL [Concomitant]
  12. STAGESIC [Concomitant]
  13. COREG [Concomitant]
  14. ALBUTEROL [Concomitant]
  15. FUROSEMIDE [Concomitant]
  16. PLAVIX [Concomitant]
  17. SILVER SULFADIAZINE [Concomitant]
  18. AUGMENTIN [Concomitant]
  19. SIMVASTATIN [Concomitant]
  20. TUSDEC-DM [Concomitant]
  21. CYCLOBENZAPRINE [Concomitant]
  22. METOLAZONE [Concomitant]
  23. TRAMADOL HCL [Concomitant]
  24. CEPHALEXIN [Concomitant]
  25. LOVASTATIN [Concomitant]
  26. CIPROFLAXACIN [Concomitant]
  27. SPIRONOLACTONE [Concomitant]
  28. FOSINOPRIL SODIUM [Concomitant]
  29. CARVEDILOL [Concomitant]
  30. NITROGLYCERIN [Concomitant]
  31. DALTEPARIN SODIUM [Concomitant]
  32. ASPIRIN [Concomitant]
  33. LIPITOR [Concomitant]
  34. CLOPIDOGREL [Concomitant]
  35. MONOPRIL [Concomitant]
  36. SODIUM CHLORIDE [Concomitant]
  37. BUMEX [Concomitant]
  38. MAALOX [Concomitant]
  39. FENTANY [Concomitant]
  40. MIDAZOLAM HCL [Concomitant]
  41. NYSTATIN [Concomitant]

REACTIONS (24)
  - ABDOMINAL PAIN UPPER [None]
  - ANHEDONIA [None]
  - ANXIETY [None]
  - AORTIC VALVE DISEASE [None]
  - ARTHRALGIA [None]
  - BRONCHITIS [None]
  - CARDIAC FAILURE CONGESTIVE [None]
  - CELLULITIS [None]
  - CHRONIC OBSTRUCTIVE PULMONARY DISEASE [None]
  - COR PULMONALE [None]
  - COUGH [None]
  - FALL [None]
  - ILL-DEFINED DISORDER [None]
  - IMPETIGO [None]
  - MULTIPLE INJURIES [None]
  - MUSCULOSKELETAL CHEST PAIN [None]
  - MYOCARDIAL ISCHAEMIA [None]
  - OEDEMA [None]
  - PAIN [None]
  - PYREXIA [None]
  - RENAL FAILURE CHRONIC [None]
  - SKIN ULCER [None]
  - SLEEP APNOEA SYNDROME [None]
  - WHEEZING [None]
